FAERS Safety Report 20230075 (Version 1)
Quarter: 2021Q4

REPORT INFORMATION
  Report Type: Spontaneous
  Country: DE (occurrence: DE)
  Receive Date: 20211226
  Receipt Date: 20211226
  Transmission Date: 20220303
  Serious: Yes (Hospitalization)
  Sender: FDA-Public Use
  Company Number: DE-ADRED-07106-02

PATIENT
  Age: 70 Year
  Sex: Female
  Weight: 92 kg

DRUGS (17)
  1. CARBAMAZEPINE [Interacting]
     Active Substance: CARBAMAZEPINE
     Dosage: 4 DOSAGE FORMS DAILY; 200 MG, 2-0-2-0,
     Route: 048
  2. SIMVASTATIN [Interacting]
     Active Substance: SIMVASTATIN
     Dosage: 1 DOSAGE FORMS DAILY; 20 MG, 0-0-1-0,
     Route: 048
  3. APIXABAN [Suspect]
     Active Substance: APIXABAN
     Dosage: 10 MILLIGRAM DAILY; 5 MG, 1-0-1-0,
     Route: 048
  4. Cyanocobalamin (Vitamin B12) [Concomitant]
     Dosage: 1 MG, ACCORDING TO THE SCHEME, AMPOULES
     Route: 030
  5. ALLOPURINOL [Concomitant]
     Active Substance: ALLOPURINOL
     Dosage: 300 MILLIGRAM DAILY; 300 MG, 0-0-1-0,
     Route: 048
  6. INSULIN HUMAN [Concomitant]
     Active Substance: INSULIN HUMAN
     Dosage: 0-0-0-12, PRE-FILLED SYRINGES
     Route: 058
  7. ASPIRIN [Concomitant]
     Active Substance: ASPIRIN
     Dosage: 100 MILLIGRAM DAILY; 100 MG, 1-0-0-0,
     Route: 048
  8. METAMIZOL [Concomitant]
     Active Substance: METAMIZOLE SODIUM
     Dosage: 4 DOSAGE FORMS DAILY; 750 MG, 1-1-1-1, DROPS
     Route: 048
  9. OXYCODONE [Concomitant]
     Active Substance: OXYCODONE
     Dosage: 10 MG, NEED,
     Route: 048
  10. NALOXONE HYDROCHLORIDE\OXYCODONE HYDROCHLORIDE [Concomitant]
     Active Substance: NALOXONE HYDROCHLORIDE\OXYCODONE HYDROCHLORIDE
     Dosage: 2 DOSAGE FORMS DAILY; 5|10 MG, 1-0-1-0,
     Route: 048
  11. INSULIN HUMAN [Concomitant]
     Active Substance: INSULIN HUMAN
     Dosage: 1 IU, 8-6-8-0, CYLINDRICAL AMPOULES
     Route: 058
  12. AMLODIPINE BESYLATE [Concomitant]
     Active Substance: AMLODIPINE BESYLATE
     Dosage: 5 MILLIGRAM DAILY; 5 MG, 1-0-0-0,
     Route: 048
  13. TRAMADOL [Concomitant]
     Active Substance: TRAMADOL
     Dosage: 100 MG, NEED, DROPS
     Route: 048
  14. HYDROCHLOROTHIAZIDE\RAMIPRIL [Concomitant]
     Active Substance: HYDROCHLOROTHIAZIDE\RAMIPRIL
     Dosage: 2 DOSAGE FORMS DAILY; 12.5|2.5 MG, 2-0-0-0,
     Route: 048
  15. METOPROLOL [Concomitant]
     Active Substance: METOPROLOL
     Dosage: 95 MILLIGRAM DAILY; 47.5 MG, 1-0-1-0,
     Route: 048
  16. ESCITALOPRAM [Concomitant]
     Active Substance: ESCITALOPRAM OXALATE
     Dosage: 10 MILLIGRAM DAILY; 10 MG, 1-0-0-0,
     Route: 048
  17. PANTOPRAZOLE SODIUM [Concomitant]
     Active Substance: PANTOPRAZOLE SODIUM
     Dosage: 80 MILLIGRAM DAILY; 40 MG, 1-0-1-0,
     Route: 048

REACTIONS (3)
  - Furuncle [Unknown]
  - Labelled drug-drug interaction medication error [Unknown]
  - Localised infection [Unknown]

NARRATIVE: CASE EVENT DATE: 20210305
